FAERS Safety Report 14989218 (Version 1)
Quarter: 2018Q2

REPORT INFORMATION
  Report Type: Spontaneous
  Country: US (occurrence: US)
  Receive Date: 20180608
  Receipt Date: 20180608
  Transmission Date: 20180711
  Serious: No
  Sender: FDA-Public Use
  Company Number: US-009507513-1805USA007831

PATIENT
  Age: 20 Year
  Sex: Female
  Weight: 98.87 kg

DRUGS (1)
  1. NEXPLANON [Suspect]
     Active Substance: ETONOGESTREL
     Indication: CONTRACEPTION
     Dosage: 1 IMPLANT (LEFT ARM-IMPLANT), EVERY 4 YEARS
     Route: 059
     Dates: start: 20170131

REACTIONS (4)
  - Amenorrhoea [Unknown]
  - Inappropriate schedule of drug administration [Unknown]
  - Weight increased [Unknown]
  - Migraine [Unknown]

NARRATIVE: CASE EVENT DATE: 20170131
